FAERS Safety Report 10956951 (Version 1)
Quarter: 2015Q1

REPORT INFORMATION
  Report Type: Spontaneous
  Country: US (occurrence: None)
  Receive Date: 20150325
  Receipt Date: 20150325
  Transmission Date: 20150721
  Serious: Yes (Other)
  Sender: FDA-Public Use
  Company Number: None

PATIENT
  Age: 44 Year
  Sex: Female
  Weight: 80.29 kg

DRUGS (10)
  1. POTASSIUM CITRATE. [Concomitant]
     Active Substance: POTASSIUM CITRATE
  2. POTASSIUM GLUCONATE [Concomitant]
     Active Substance: POTASSIUM GLUCONATE
  3. MAGNESIUM [Concomitant]
     Active Substance: MAGNESIUM
  4. SODIUM BICARBONATE. [Suspect]
     Active Substance: SODIUM BICARBONATE
     Indication: METABOLIC ACIDOSIS
     Dosage: 1150 BAG WEEKLY
     Route: 042
  5. SODIUM BICARBONATE. [Concomitant]
     Active Substance: SODIUM BICARBONATE
  6. SODIUM CHLORIDE. [Concomitant]
     Active Substance: SODIUM CHLORIDE
  7. MAGNESIUM [Concomitant]
     Active Substance: MAGNESIUM
  8. TUMS [Concomitant]
     Active Substance: CALCIUM CARBONATE
  9. LEVOTHYROXINE [Concomitant]
     Active Substance: LEVOTHYROXINE
  10. POTASSIUM [Concomitant]
     Active Substance: POTASSIUM

REACTIONS (8)
  - Alkalosis [None]
  - Thirst [None]
  - Vomiting [None]
  - Muscle twitching [None]
  - Hyperventilation [None]
  - Paraesthesia [None]
  - Hot flush [None]
  - Hypoaesthesia [None]

NARRATIVE: CASE EVENT DATE: 20150317
